FAERS Safety Report 7070305-7 (Version None)
Quarter: 2010Q4

REPORT INFORMATION
  Report Type: 
  Country: None (occurrence: None)
  Receive Date: 20101028
  Receipt Date: 20101011
  Transmission Date: 20110411
  Serious: No
  Sender: FDA-Public Use
  Company Number: US-WYE-H18112110

PATIENT
  Sex: Male
  Weight: 88.98 kg

DRUGS (1)
  1. PROTONIX [Suspect]
     Indication: GASTROOESOPHAGEAL REFLUX DISEASE
     Dosage: 20 MG OR 40 MG DAILY AS NEEDED
     Route: 048
     Dates: start: 20100101, end: 20101005

REACTIONS (1)
  - DRUG SCREEN FALSE POSITIVE [None]
